FAERS Safety Report 19609010 (Version 1)
Quarter: 2021Q3

REPORT INFORMATION
  Report Type: Spontaneous
  Country: US (occurrence: US)
  Receive Date: 20210723
  Receipt Date: 20210723
  Transmission Date: 20211014
  Serious: No
  Sender: FDA-Public Use
  Company Number: None

PATIENT
  Sex: Male

DRUGS (1)
  1. HUMIRA [Suspect]
     Active Substance: ADALIMUMAB
     Indication: PSORIASIS
     Dosage: ?          OTHER FREQUENCY:EVERY14DAYS ;?
     Route: 042
     Dates: start: 2017

REACTIONS (5)
  - Skin discolouration [None]
  - Pruritus [None]
  - Therapeutic product effect incomplete [None]
  - Condition aggravated [None]
  - Burning sensation [None]
